FAERS Safety Report 22336544 (Version 2)
Quarter: 2025Q4

REPORT INFORMATION
  Report Type: Report from Study
  Country: US (occurrence: US)
  Receive Date: 20230518
  Receipt Date: 20251226
  Transmission Date: 20260117
  Serious: Yes (Hospitalization, Other)
  Sender: AMNEAL
  Company Number: US-AMNEAL PHARMACEUTICALS-2023-AMRX-01640

PATIENT
  Sex: Male
  Weight: 98.866 kg

DRUGS (5)
  1. CARBIDOPA\LEVODOPA [Suspect]
     Active Substance: CARBIDOPA\LEVODOPA
     Indication: Parkinson^s disease
     Dosage: 2 CAPSULES, 4 /DAY
     Route: 048
     Dates: start: 202206
  2. CARBIDOPA\LEVODOPA [Suspect]
     Active Substance: CARBIDOPA\LEVODOPA
     Dosage: 2 CAPSULES BY MOUTH IN THE MORNING, 1 CAPSULE AT NOON, 2 CAPSULES IN THE EVENING, AND 1 CAPSULE AT B
     Route: 048
     Dates: start: 20240118
  3. CARBIDOPA\LEVODOPA [Suspect]
     Active Substance: CARBIDOPA\LEVODOPA
     Dosage: 61.25-245 MG (2 CAPSULES, 4 /DAY)
     Route: 048
     Dates: start: 20250728
  4. PAROXETINE [Concomitant]
     Active Substance: PAROXETINE
     Indication: Anxiety
     Dosage: UNK
     Route: 065
  5. AMANTADINE [Concomitant]
     Active Substance: AMANTADINE
     Indication: Tremor
     Dosage: UNK
     Route: 065

REACTIONS (2)
  - Tremor [Unknown]
  - Product substitution issue [Unknown]
